FAERS Safety Report 19944965 (Version 1)
Quarter: 2021Q4

REPORT INFORMATION
  Report Type: Spontaneous
  Country: QA (occurrence: QA)
  Receive Date: 20211012
  Receipt Date: 20211012
  Transmission Date: 20220303
  Serious: Yes (Other)
  Sender: FDA-Public Use
  Company Number: QA-MLMSERVICE-20210923-3125739-1

PATIENT
  Age: 32 Year
  Sex: Female

DRUGS (6)
  1. METHYLPREDNISOLONE [Suspect]
     Active Substance: METHYLPREDNISOLONE
     Indication: Nerve root injury
     Dosage: CT GUIDED LEFT L5-S1 TRANSFORAMINAL NERVE ROOT BLOCK USING 80 MG OF PARTICULATE METHYLPREDNISOLONE A
     Route: 008
  2. METHYLPREDNISOLONE [Suspect]
     Active Substance: METHYLPREDNISOLONE
     Indication: Nerve block
  3. LEVOBUPIVACAINE [Suspect]
     Active Substance: LEVOBUPIVACAINE
     Indication: Nerve block
     Dosage: CT GUIDED LEFT L5-S1 TRANSFORAMINAL NERVE ROOT BLOCK USING 80 MG OF PARTICULATE METHYLPREDNISOLONE A
     Route: 008
  4. CELECOXIB [Concomitant]
     Active Substance: CELECOXIB
     Indication: Analgesic therapy
     Dosage: 200 MG, 2X/DAY
  5. ACETAMINOPHEN [Concomitant]
     Active Substance: ACETAMINOPHEN
     Indication: Analgesic therapy
     Dosage: 1000 MG, 3X/DAY
  6. GABAPENTIN [Concomitant]
     Active Substance: GABAPENTIN
     Indication: Analgesic therapy
     Dosage: 300 MG, 1X/DAY

REACTIONS (7)
  - Hyperaesthesia [Recovered/Resolved]
  - Radiculopathy [Recovered/Resolved]
  - Spinal cord infarction [Recovered/Resolved]
  - Nervous system disorder [Recovered/Resolved]
  - Spinal stenosis [Recovered/Resolved]
  - Muscular weakness [Recovered/Resolved]
  - Muscular weakness [Recovered/Resolved]
